FAERS Safety Report 10696590 (Version 7)
Quarter: 2015Q3

REPORT INFORMATION
  Report Type: Spontaneous
  Country: US (occurrence: US)
  Receive Date: 20150107
  Receipt Date: 20150721
  Transmission Date: 20151125
  Serious: Yes (Other)
  Sender: FDA-Public Use
  Company Number: US-GLAXOSMITHKLINE-US2015000368

PATIENT
  Age: 69 Year
  Sex: Female

DRUGS (18)
  1. VOTRIENT [Suspect]
     Active Substance: PAZOPANIB HYDROCHLORIDE
     Dosage: UNK
  2. NORVASC [Concomitant]
     Active Substance: AMLODIPINE BESYLATE
  3. FLUOXETINE [Concomitant]
     Active Substance: FLUOXETINE\FLUOXETINE HYDROCHLORIDE
  4. ETODOLAC. [Concomitant]
     Active Substance: ETODOLAC
  5. VOTRIENT [Suspect]
     Active Substance: PAZOPANIB HYDROCHLORIDE
     Dosage: UNK
  6. HYDROXYCHLOROQUINE [Concomitant]
     Active Substance: HYDROXYCHLOROQUINE
  7. UNIVASC [Concomitant]
     Active Substance: MOEXIPRIL HYDROCHLORIDE
  8. AMOXICILLIN. [Concomitant]
     Active Substance: AMOXICILLIN
  9. VOTRIENT [Suspect]
     Active Substance: PAZOPANIB HYDROCHLORIDE
     Indication: METASTATIC RENAL CELL CARCINOMA
     Dosage: 600 MG, QD
     Route: 065
     Dates: start: 20141217
  10. VOTRIENT [Suspect]
     Active Substance: PAZOPANIB HYDROCHLORIDE
     Indication: BRAIN NEOPLASM MALIGNANT
     Dosage: UNK
     Dates: start: 20141227
  11. ATIVAN [Concomitant]
     Active Substance: LORAZEPAM
  12. NORCO [Concomitant]
     Active Substance: ACETAMINOPHEN\HYDROCODONE BITARTRATE
  13. PRILOSEC [Concomitant]
     Active Substance: OMEPRAZOLE MAGNESIUM
  14. VOTRIENT [Suspect]
     Active Substance: PAZOPANIB HYDROCHLORIDE
     Indication: RENAL CANCER
     Dosage: 800 MG, QD
     Route: 065
     Dates: start: 20141226
  15. VOTRIENT [Suspect]
     Active Substance: PAZOPANIB HYDROCHLORIDE
     Dosage: UNK
  16. ASPIRIN. [Concomitant]
     Active Substance: ASPIRIN
  17. VOTRIENT [Suspect]
     Active Substance: PAZOPANIB HYDROCHLORIDE
     Dosage: UNK
     Dates: start: 20141217, end: 20150513
  18. CIPROFLOXACIN. [Concomitant]
     Active Substance: CIPROFLOXACIN

REACTIONS (14)
  - Diarrhoea [Not Recovered/Not Resolved]
  - Nausea [Not Recovered/Not Resolved]
  - Quality of life decreased [Unknown]
  - Vomiting [Unknown]
  - Renal failure [Recovered/Resolved]
  - Weight decreased [Unknown]
  - Decreased appetite [Not Recovered/Not Resolved]
  - Hepatic enzyme increased [Unknown]
  - Chills [Not Recovered/Not Resolved]
  - Contusion [Unknown]
  - Fatigue [Not Recovered/Not Resolved]
  - Dysgeusia [Not Recovered/Not Resolved]
  - Alopecia [Not Recovered/Not Resolved]
  - Retching [Unknown]

NARRATIVE: CASE EVENT DATE: 201412
